FAERS Safety Report 9238189 (Version 2)
Quarter: 2013Q2

REPORT INFORMATION
  Report Type: Spontaneous
  Country: US (occurrence: None)
  Receive Date: 20130415
  Receipt Date: 20130524
  Transmission Date: 20140414
  Serious: Yes (Hospitalization)
  Sender: FDA-Public Use
  Company Number: ACO_35391_2013

PATIENT
  Age: 63 Year
  Sex: Female

DRUGS (7)
  1. AMPYRA [Suspect]
     Indication: GAIT DISTURBANCE
     Dates: end: 20130326
  2. RESTORIL (TEMAZEPAM) [Concomitant]
  3. MOBIC (MELOXICAM) [Concomitant]
  4. INDERAL LA (PROPRANOLOL HYDROCHLORIDE) [Concomitant]
  5. ZETIA (EZETIMIBE) [Concomitant]
  6. SYNTHROID (LEVOTHYROXINE SODIUM) [Concomitant]
  7. TYSABRI (NATALIZUMAB) [Concomitant]

REACTIONS (1)
  - Convulsion [None]
